FAERS Safety Report 11368551 (Version 1)
Quarter: 2015Q3

REPORT INFORMATION
  Report Type: Spontaneous
  Country: US (occurrence: None)
  Receive Date: 20150811
  Receipt Date: 20150811
  Transmission Date: 20151125
  Serious: Yes (Hospitalization, Disabling, Other)
  Sender: FDA-Public Use
  Company Number: None

PATIENT
  Age: 75 Year
  Sex: Female

DRUGS (15)
  1. SYNTHROID [Concomitant]
     Active Substance: LEVOTHYROXINE SODIUM
  2. ASPIRIN. [Concomitant]
     Active Substance: ASPIRIN
  3. XELODA [Suspect]
     Active Substance: CAPECITABINE
     Indication: PROPHYLAXIS
     Route: 048
     Dates: start: 201301, end: 201306
  4. DRISDOL [Concomitant]
     Active Substance: ERGOCALCIFEROL
  5. ZOCOR [Concomitant]
     Active Substance: SIMVASTATIN
  6. VISTARIL [Concomitant]
     Active Substance: HYDROXYZINE PAMOATE
  7. METOPROLOL [Concomitant]
     Active Substance: METOPROLOL
  8. TYLENOL [Concomitant]
     Active Substance: ACETAMINOPHEN
  9. MELOXICAM. [Concomitant]
     Active Substance: MELOXICAM
  10. XELODA [Suspect]
     Active Substance: CAPECITABINE
     Indication: COLON CANCER
     Route: 048
     Dates: start: 201301, end: 201306
  11. XELODA [Suspect]
     Active Substance: CAPECITABINE
     Indication: SURGERY
     Route: 048
     Dates: start: 201301, end: 201306
  12. ZOLOFT [Concomitant]
     Active Substance: SERTRALINE HYDROCHLORIDE
  13. CALCITRIOL. [Concomitant]
     Active Substance: CALCITRIOL
  14. LASIX [Concomitant]
     Active Substance: FUROSEMIDE
  15. PROMETHAZINE [Concomitant]
     Active Substance: PROMETHAZINE\PROMETHAZINE HYDROCHLORIDE

REACTIONS (2)
  - Fall [None]
  - Mobility decreased [None]

NARRATIVE: CASE EVENT DATE: 20130201
